FAERS Safety Report 9664194 (Version 1)
Quarter: 2013Q4

REPORT INFORMATION
  Report Type: Spontaneous
  Country: US (occurrence: None)
  Receive Date: 20131030
  Receipt Date: 20131030
  Transmission Date: 20140711
  Serious: Yes (Hospitalization)
  Sender: FDA-Public Use
  Company Number: None

PATIENT
  Age: 32 Year
  Sex: Male
  Weight: 49 kg

DRUGS (8)
  1. CARBAMAZEPINE ER [Suspect]
     Indication: CONVULSION
     Dosage: 200 MG  BID  ORAL
     Route: 048
     Dates: start: 20110705, end: 20110722
  2. VANCOMYCIN [Concomitant]
  3. ACYCLOVIR [Concomitant]
  4. CLINDAMYCIN [Concomitant]
  5. ASPIRIN [Concomitant]
  6. CIPROFLOXACIN [Concomitant]
  7. POLYMIXIN B SULFATE [Concomitant]
  8. TRIMETHOPRIM [Concomitant]

REACTIONS (1)
  - Stevens-Johnson syndrome [None]
